FAERS Safety Report 11715838 (Version 1)
Quarter: 2015Q4

REPORT INFORMATION
  Report Type: Spontaneous
  Country: FR (occurrence: FR)
  Receive Date: 20151109
  Receipt Date: 20151109
  Transmission Date: 20160304
  Serious: Yes (Hospitalization)
  Sender: FDA-Public Use
  Company Number: FR-PFIZER INC-2015364617

PATIENT
  Age: 85 Year
  Sex: Male

DRUGS (10)
  1. EBIXA [Concomitant]
     Active Substance: MEMANTINE HYDROCHLORIDE
     Indication: DEMENTIA
     Dosage: UNK
     Dates: end: 20150925
  2. CORDARONE [Suspect]
     Active Substance: AMIODARONE HYDROCHLORIDE
     Indication: ATRIAL FIBRILLATION
     Dosage: 800 MG, UNK
     Route: 048
     Dates: start: 201509, end: 201509
  3. CORDARONE [Suspect]
     Active Substance: AMIODARONE HYDROCHLORIDE
     Dosage: 2 DF, UNK
     Route: 048
     Dates: start: 201509, end: 20150925
  4. PREVISCAN [Concomitant]
     Active Substance: FLUINDIONE
     Indication: ATRIAL FIBRILLATION
     Dosage: UNK
     Dates: start: 20150920, end: 20150925
  5. ROCEPHINE [Concomitant]
     Active Substance: CEFTRIAXONE SODIUM
     Dosage: UNK
  6. DIFFU K [Concomitant]
     Active Substance: POTASSIUM CHLORIDE
     Dosage: UNK
  7. CORDARONE [Suspect]
     Active Substance: AMIODARONE HYDROCHLORIDE
     Indication: ATRIAL FIBRILLATION
     Dosage: 300 MG, UNK
     Route: 042
     Dates: start: 201509, end: 201509
  8. RAMIPRIL. [Concomitant]
     Active Substance: RAMIPRIL
     Indication: HYPERTENSION
     Dosage: UNK
     Dates: end: 20150925
  9. RISPERDAL [Concomitant]
     Active Substance: RISPERIDONE
     Dosage: UNK
  10. FLAGYL [Concomitant]
     Active Substance: METRONIDAZOLE\METRONIDAZOLE HYDROCHLORIDE
     Dosage: UNK

REACTIONS (4)
  - Bradycardia [Recovered/Resolved]
  - Acute kidney injury [Recovered/Resolved]
  - International normalised ratio increased [Recovered/Resolved]
  - Hepatitis [Recovered/Resolved]

NARRATIVE: CASE EVENT DATE: 20150925
